FAERS Safety Report 10032210 (Version 1)
Quarter: 2014Q1

REPORT INFORMATION
  Report Type: Spontaneous
  Country: US (occurrence: US)
  Receive Date: 20140324
  Receipt Date: 20140324
  Transmission Date: 20141002
  Serious: No
  Sender: FDA-Public Use
  Company Number: US-009507513-1403USA000627

PATIENT
  Age: 9 Year
  Sex: Male
  Weight: 40.82 kg

DRUGS (1)
  1. CLARITIN REDITABS [Suspect]
     Indication: SEASONAL ALLERGY
     Dosage: 20 MG, ONCE
     Route: 048
     Dates: start: 20140217

REACTIONS (1)
  - Accidental overdose [Unknown]
